FAERS Safety Report 6415518-X (Version None)
Quarter: 2009Q4

REPORT INFORMATION
  Report Type: 
  Country: None (occurrence: None)
  Receive Date: 20091027
  Receipt Date: 20091021
  Transmission Date: 20100525
  Serious: Yes (Hospitalization)
  Sender: FDA-Public Use
  Company Number: FR-WYE-G04677109

PATIENT
  Sex: Female

DRUGS (2)
  1. ADVIL ENFANTS ET NOURRISSONS [Suspect]
     Dosage: ONE SINGLE DOSE
     Route: 048
     Dates: start: 20090924, end: 20090924
  2. DOLIPRANE [Suspect]
     Dosage: 1 DOSE-FORM AS REQUIRED
     Route: 048
     Dates: start: 20090924, end: 20091002

REACTIONS (3)
  - ACUTE GENERALISED EXANTHEMATOUS PUSTULOSIS [None]
  - HERPES VIRUS INFECTION [None]
  - SKIN EXFOLIATION [None]
